FAERS Safety Report 6381490-4 (Version None)
Quarter: 2009Q3

REPORT INFORMATION
  Report Type: 
  Country: None (occurrence: None)
  Receive Date: 20090924
  Receipt Date: 20090815
  Transmission Date: 20100115
  Serious: Yes (Other)
  Sender: FDA-Public Use
  Company Number: CHPA2009US15382

PATIENT
  Age: 49 Year
  Sex: Female
  Weight: 64.4 kg

DRUGS (13)
  1. EXCEDRIN EXTRA STRENGTH (NCH)(CAFFEINE CITRATE, ACETYLSALICYLIC ACID, [Suspect]
     Indication: HEADACHE
     Dosage: 60 MG, QD, ORAL
     Route: 048
  2. NABUMETONE [Suspect]
     Indication: FIBROMYALGIA
     Dosage: 750 MG, QD, ORAL
     Route: 048
     Dates: start: 20060419, end: 20080714
  3. CITALOPRAM HYDROBROMIDE [Concomitant]
  4. GABAPENTIN [Concomitant]
  5. SODIUM BICARBONATE IN PLASTIC CONTAINER [Concomitant]
  6. CALCIUM-D-SANDOZ (CALCIUM CARBONATE, COLECALCIFEROL) [Concomitant]
  7. MULTIVITAMINS (ASCORBIC ACID, ERGOCALCIFEROL, FOLIC ACID, NICOTINAMIDE [Concomitant]
  8. VITAMIN B12 [Concomitant]
  9. CALCITROL (CALCIUM CARBONATE, ERGOCALCIFEROL, RETINOL) [Concomitant]
  10. TRIAMTERENE AND HYDROCHLOROTHIAZID ^HARRIS^ (HYDROCHLOROTHIAZIDE, TRIA [Concomitant]
  11. CELEXA [Concomitant]
  12. ^ULTRA ANTIOXIDANT^ [Concomitant]
  13. EXCEDRIN QUICKTAB (NCH) (ACETAMINOPHEN (PARACETAMOL), CAFFEINE) TABLET [Concomitant]

REACTIONS (23)
  - ACIDOSIS [None]
  - BLOOD CHLORIDE INCREASED [None]
  - BLOOD GLUCOSE INCREASED [None]
  - BLOOD PARATHYROID HORMONE INCREASED [None]
  - BLOOD PHOSPHORUS INCREASED [None]
  - CARBON DIOXIDE DECREASED [None]
  - DEPRESSION [None]
  - FATIGUE [None]
  - FIBROMYALGIA [None]
  - GLOMERULAR FILTRATION RATE DECREASED [None]
  - HYPERCALCAEMIA [None]
  - HYPERPARATHYROIDISM SECONDARY [None]
  - HYPERTENSION [None]
  - HYPOVOLAEMIA [None]
  - INTENTIONAL DRUG MISUSE [None]
  - IRON DEFICIENCY ANAEMIA [None]
  - KIDNEY SMALL [None]
  - METABOLIC ACIDOSIS [None]
  - NEPHROLITHIASIS [None]
  - PROTEINURIA [None]
  - RED BLOOD CELL COUNT DECREASED [None]
  - RENAL FAILURE CHRONIC [None]
  - VITAMIN B12 INCREASED [None]
